FAERS Safety Report 11009735 (Version 3)
Quarter: 2015Q3

REPORT INFORMATION
  Report Type: Spontaneous
  Country: US (occurrence: US)
  Receive Date: 20150410
  Receipt Date: 20150908
  Transmission Date: 20151125
  Serious: Yes (Hospitalization)
  Sender: FDA-Public Use
  Company Number: US-BAYER-2015-118715

PATIENT
  Age: 25 Year
  Sex: Female
  Weight: 56.96 kg

DRUGS (1)
  1. MIRENA [Suspect]
     Active Substance: LEVONORGESTREL
     Indication: CONTRACEPTION
     Dosage: 20 MCG/24HR, CONT
     Route: 015
     Dates: start: 20120618, end: 20130726

REACTIONS (4)
  - Injury [None]
  - Pain [None]
  - Uterine perforation [None]
  - Emotional distress [None]

NARRATIVE: CASE EVENT DATE: 20130726
